FAERS Safety Report 7449196-8 (Version None)
Quarter: 2011Q2

REPORT INFORMATION
  Report Type: 
  Country: None (occurrence: None)
  Receive Date: 20110502
  Receipt Date: 20110420
  Transmission Date: 20111010
  Serious: Yes (Hospitalization, Other)
  Sender: FDA-Public Use
  Company Number: BR-BIOGENIDEC-2010BI005694

PATIENT
  Age: 59 Year
  Sex: Female

DRUGS (5)
  1. AVONEX [Suspect]
     Dates: start: 20020101, end: 20110301
  2. SIMVASTATIN [Concomitant]
  3. CLOPIDOGREL [Concomitant]
  4. AVONEX [Suspect]
     Indication: MULTIPLE SCLEROSIS
     Route: 030
     Dates: start: 19980101, end: 20000101
  5. AVONEX [Suspect]
     Dates: start: 20110301, end: 20110401

REACTIONS (17)
  - DIABETES MELLITUS [None]
  - HEADACHE [None]
  - VOMITING [None]
  - CONVULSION [None]
  - TREMOR [None]
  - NAUSEA [None]
  - CHILLS [None]
  - CATARACT [None]
  - DEPRESSED MOOD [None]
  - HYPERTENSION [None]
  - URINARY TRACT INFECTION [None]
  - MULTIPLE SCLEROSIS RELAPSE [None]
  - VISUAL ACUITY REDUCED [None]
  - DEPRESSION [None]
  - FATIGUE [None]
  - BLINDNESS [None]
  - CEREBROVASCULAR ACCIDENT [None]
